FAERS Safety Report 18633437 (Version 1)
Quarter: 2020Q4

REPORT INFORMATION
  Report Type: Other
  Country: BE (occurrence: BE)
  Receive Date: 20201218
  Receipt Date: 20201218
  Transmission Date: 20210114
  Serious: Yes (Hospitalization, Other)
  Sender: FDA-Public Use
  Company Number: BE-ROCHE-2731783

PATIENT
  Sex: Female

DRUGS (7)
  1. BEVACIZUMAB. [Suspect]
     Active Substance: BEVACIZUMAB
     Indication: HEPATOCELLULAR CARCINOMA
     Route: 065
     Dates: start: 20200731
  2. ATEZOLIZUMAB. [Suspect]
     Active Substance: ATEZOLIZUMAB
     Indication: HEPATOCELLULAR CARCINOMA
     Route: 041
     Dates: start: 20200731
  3. L-THYROXINE [Concomitant]
     Active Substance: LEVOTHYROXINE
  4. ASAFLOW [Concomitant]
     Active Substance: ASPIRIN
  5. PLENDIL [Concomitant]
     Active Substance: FELODIPINE
  6. ROSUVASTATIN. [Concomitant]
     Active Substance: ROSUVASTATIN
  7. CERAZETTE [Concomitant]

REACTIONS (7)
  - Arthralgia [Unknown]
  - Myalgia [Unknown]
  - Asthenia [Unknown]
  - Urinary retention [Unknown]
  - General physical health deterioration [Unknown]
  - Escherichia test positive [Unknown]
  - Pyrexia [Unknown]
